FAERS Safety Report 7699518-8 (Version None)
Quarter: 2011Q3

REPORT INFORMATION
  Report Type: 
  Country: None (occurrence: None)
  Receive Date: 20110820
  Receipt Date: 20110726
  Transmission Date: 20111222
  Serious: No
  Sender: FDA-Public Use
  Company Number: US-ALLERGAN-1110104US

PATIENT
  Age: 85 Year
  Sex: Male

DRUGS (2)
  1. VESICARE [Concomitant]
     Indication: BLADDER DISORDER
     Dosage: 10 MG, QD
     Route: 048
     Dates: start: 20110715
  2. SANCTURA XR [Suspect]
     Indication: HYPERTONIC BLADDER
     Dosage: 60 MG, QD
     Route: 048
     Dates: start: 20110715

REACTIONS (1)
  - CONSTIPATION [None]
